FAERS Safety Report 12322258 (Version 1)
Quarter: 2016Q2

REPORT INFORMATION
  Report Type: Spontaneous
  Country: US (occurrence: US)
  Receive Date: 20160502
  Receipt Date: 20160502
  Transmission Date: 20160815
  Serious: Yes (Other)
  Sender: FDA-Public Use
  Company Number: US-BAYER-2016-077937

PATIENT
  Age: 19 Year
  Sex: Male

DRUGS (4)
  1. MAGNEVIST [Suspect]
     Active Substance: GADOPENTETATE DIMEGLUMINE
     Dosage: UNK UNK, ONCE
  2. MULTIHANCE [Suspect]
     Active Substance: GADOBENATE DIMEGLUMINE
  3. OMNISCAN [Suspect]
     Active Substance: GADODIAMIDE
  4. PROHANCE [Suspect]
     Active Substance: GADOTERIDOL

REACTIONS (2)
  - Medication residue present [None]
  - Joint contracture [None]
